FAERS Safety Report 10237681 (Version 1)
Quarter: 2014Q2

REPORT INFORMATION
  Report Type: Spontaneous
  Country: US (occurrence: US)
  Receive Date: 20140616
  Receipt Date: 20140616
  Transmission Date: 20141212
  Serious: No
  Sender: FDA-Public Use
  Company Number: US-ASTRAZENECA-2014SE39344

PATIENT
  Age: 63 Year
  Sex: Male
  Weight: 95.3 kg

DRUGS (8)
  1. BRILINTA [Suspect]
     Indication: STENT PLACEMENT
     Route: 048
  2. METOPROLOL [Suspect]
     Indication: BLOOD PRESSURE ABNORMAL
     Route: 065
  3. LIPITOR [Concomitant]
     Indication: BLOOD CHOLESTEROL ABNORMAL
  4. RAMIPRIL [Concomitant]
     Indication: BLOOD PRESSURE ABNORMAL
  5. METHOTREXATE [Concomitant]
     Indication: PSORIATIC ARTHROPATHY
  6. ASPIRIN [Concomitant]
  7. DICLOFENAC [Concomitant]
     Indication: DYSPEPSIA
  8. FISH OIL [Concomitant]
     Dosage: DAILY

REACTIONS (3)
  - Pain [Not Recovered/Not Resolved]
  - Gait disturbance [Not Recovered/Not Resolved]
  - Fatigue [Not Recovered/Not Resolved]
